FAERS Safety Report 5333194-4 (Version None)
Quarter: 2007Q2

REPORT INFORMATION
  Report Type: 
  Country: None (occurrence: None)
  Receive Date: 20070521
  Receipt Date: 20070521
  Transmission Date: 20071010
  Serious: Yes (Death)
  Sender: FDA-Public Use
  Company Number: None

PATIENT
  Age: 45 Year
  Sex: Male
  Weight: 71.9 kg

DRUGS (9)
  1. DAUNORUBICIN 90MG/M2/DAY [Suspect]
     Indication: ACUTE MYELOID LEUKAEMIA
     Dosage: 90 MG/M2 Q DAY X 3 DAYS IV DRIP
     Route: 041
     Dates: start: 20070222, end: 20070224
  2. DAUNORUBICIN 90MG/M2/DAY [Suspect]
     Indication: CHEMOTHERAPY
     Dosage: 90 MG/M2 Q DAY X 3 DAYS IV DRIP
     Route: 041
     Dates: start: 20070222, end: 20070224
  3. CYTARABINE [Suspect]
     Indication: ACUTE MYELOID LEUKAEMIA
     Dosage: 3 G/ M2 Q12 HRS ON D 1, 3,5 IV DRIP
     Route: 041
     Dates: start: 20070417, end: 20070421
  4. CYTARABINE [Suspect]
     Indication: CHEMOTHERAPY
     Dosage: 3 G/ M2 Q12 HRS ON D 1, 3,5 IV DRIP
     Route: 041
     Dates: start: 20070417, end: 20070421
  5. CIPROFLOXACIN [Concomitant]
  6. PENICILLIN VK [Concomitant]
  7. AMLODIPINE [Concomitant]
  8. ACYCLOVIR [Concomitant]
  9. FLUCONAZOLE [Concomitant]

REACTIONS (5)
  - FEBRILE NEUTROPENIA [None]
  - FUNGAL INFECTION [None]
  - MULTI-ORGAN FAILURE [None]
  - RESPIRATORY FAILURE [None]
  - ZYGOMYCOSIS [None]
